FAERS Safety Report 5714408-5 (Version None)
Quarter: 2008Q2

REPORT INFORMATION
  Report Type: 
  Country: None (occurrence: None)
  Receive Date: 20080423
  Receipt Date: 20001129
  Transmission Date: 20081010
  Serious: Yes (Death, Hospitalization)
  Sender: FDA-Public Use
  Company Number: CH-ROCHE-264411

PATIENT

DRUGS (1)
  1. TORSEMIDE [Suspect]
     Route: 048
     Dates: start: 20000221, end: 20000725

REACTIONS (2)
  - DEATH [None]
  - PERIPHERAL VASCULAR DISORDER [None]
